FAERS Safety Report 8624558-1 (Version None)
Quarter: 2012Q3

REPORT INFORMATION
  Report Type: 
  Country: None (occurrence: None)
  Receive Date: 20120827
  Receipt Date: 20120817
  Transmission Date: 20120928
  Serious: Yes (Hospitalization, Other)
  Sender: FDA-Public Use
  Company Number: US-ASTRAZENECA-2010SE28171

PATIENT
  Age: 75 Year
  Sex: Male
  Weight: 92.1 kg

DRUGS (19)
  1. PULMICORT FLEXHALER [Suspect]
     Indication: ASTHMA
     Route: 055
  2. PRAVASTATIN [Concomitant]
  3. PRAVACHOL [Concomitant]
     Route: 048
  4. TYLENOL [Concomitant]
     Indication: PAIN
     Dosage: 2 TABLETS EVERY 8 HOURS AS NEEDED
     Route: 048
  5. CLONAZEPAM [Concomitant]
  6. CELEXA [Concomitant]
     Route: 048
  7. NITROGLYCERIN [Concomitant]
     Indication: CHEST PAIN
     Dosage: 0.4 MG EVERY 5 MINUTES X 3
     Route: 060
  8. COLACE [Concomitant]
     Route: 048
  9. BENEFIBER [Concomitant]
     Dosage: 2 TEA SPOONS 3 TIMES A DAY
     Route: 048
  10. CASODEX [Suspect]
     Indication: PROSTATE CANCER
     Route: 048
  11. LISINOPRIL [Suspect]
     Route: 048
  12. ASPIRIN [Concomitant]
     Route: 048
  13. PLAVIX [Concomitant]
     Route: 048
  14. NAPROXEN (ALEVE) [Concomitant]
  15. NEXIUM [Suspect]
     Indication: GASTROOESOPHAGEAL REFLUX DISEASE
     Route: 048
  16. LOPRESSOR [Concomitant]
     Route: 048
  17. FIBERCON [Concomitant]
  18. CITALOPRAM HYDROBROMIDE [Concomitant]
  19. IBUPROFEN [Concomitant]
     Dosage: PRN

REACTIONS (18)
  - CORONARY ARTERY DISEASE [None]
  - HAEMORRHOIDS [None]
  - VOMITING [None]
  - ANGINA PECTORIS [None]
  - MYOCARDIAL INFARCTION [None]
  - DYSPNOEA [None]
  - RETCHING [None]
  - COLD SWEAT [None]
  - RESTLESS LEGS SYNDROME [None]
  - INTENTIONAL DRUG MISUSE [None]
  - ANGINA UNSTABLE [None]
  - ASTHMA [None]
  - CHEST DISCOMFORT [None]
  - CONSTIPATION [None]
  - NAUSEA [None]
  - PROSTATE CANCER [None]
  - HYPERTENSION [None]
  - DYSLIPIDAEMIA [None]
